FAERS Safety Report 26143590 (Version 1)
Quarter: 2025Q4

REPORT INFORMATION
  Report Type: Spontaneous
  Country: CA (occurrence: CA)
  Receive Date: 20251211
  Receipt Date: 20251211
  Transmission Date: 20260118
  Serious: Yes (Other)
  Sender: ALEXION PHARMACEUTICALS
  Company Number: E2B_07709560

PATIENT
  Age: 66 Year
  Sex: Female

DRUGS (8)
  1. CRESTOR [Interacting]
     Active Substance: ROSUVASTATIN CALCIUM
     Indication: Product used for unknown indication
     Dosage: 10.0 MILLIGRAM, 1 EVERY 24 HOURS
     Route: 065
  2. CRESTOR [Interacting]
     Active Substance: ROSUVASTATIN CALCIUM
     Dosage: 5.0 MILLIGRAM, 1 EVERY 24 HOURS
     Route: 065
  3. ELTROMBOPAG OLAMINE [Interacting]
     Active Substance: ELTROMBOPAG OLAMINE
     Indication: Immune thrombocytopenia
     Dosage: 25.0 MILLIGRAM, 1 EVERY 24 HOURS
  4. ELTROMBOPAG OLAMINE [Interacting]
     Active Substance: ELTROMBOPAG OLAMINE
     Dosage: 50.0 MILLIGRAM,1 EVERY 24 HOURS
  5. AMLODIPINE [Concomitant]
     Active Substance: AMLODIPINE BESYLATE
     Indication: Product used for unknown indication
     Dosage: 5.0 MILLIGRAM
     Route: 065
  6. Exus hydrochlorothiazide [Concomitant]
     Indication: Product used for unknown indication
     Dosage: 25.0 MILLIGRAM
     Route: 065
  7. METFORMIN [Concomitant]
     Active Substance: METFORMIN HYDROCHLORIDE
  8. SEMAGLUTIDE [Concomitant]
     Active Substance: SEMAGLUTIDE

REACTIONS (4)
  - Drug interaction [Recovered/Resolved]
  - Hepatic enzyme increased [Recovered/Resolved]
  - Platelet count decreased [Recovered/Resolved]
  - Platelet count increased [Recovered/Resolved]
